FAERS Safety Report 11769495 (Version 1)
Quarter: 2015Q4

REPORT INFORMATION
  Report Type: Spontaneous
  Country: US (occurrence: US)
  Receive Date: 20151123
  Receipt Date: 20151123
  Transmission Date: 20160304
  Serious: No
  Sender: FDA-Public Use
  Company Number: US-BAYER-2015-468942

PATIENT
  Age: 79 Year
  Sex: Male
  Weight: 52.15 kg

DRUGS (3)
  1. MAGNESIUM [Concomitant]
     Active Substance: MAGNESIUM
     Dosage: 1 DF, UNK
     Route: 048
  2. VITAMIN C [Concomitant]
     Active Substance: ASCORBIC ACID
     Dosage: 1 DF, QD
     Route: 048
  3. MIRALAX [Suspect]
     Active Substance: POLYETHYLENE GLYCOL 3350
     Indication: CONSTIPATION
     Dosage: 1 DF, UNK
     Route: 048

REACTIONS (4)
  - Product use issue [None]
  - Diarrhoea [None]
  - Abdominal distension [Recovered/Resolved]
  - Discomfort [Recovered/Resolved]
